FAERS Safety Report 8022514-8 (Version None)
Quarter: 2012Q1

REPORT INFORMATION
  Report Type: 
  Country: None (occurrence: None)
  Receive Date: 20120104
  Receipt Date: 20120103
  Transmission Date: 20120608
  Serious: Yes (Hospitalization)
  Sender: FDA-Public Use
  Company Number: US-GLAXOSMITHKLINE-A0849025A

PATIENT
  Sex: Male
  Weight: 73.2 kg

DRUGS (8)
  1. SUSTIVA [Concomitant]
  2. COMBIVIR [Concomitant]
  3. DIGOXIN [Concomitant]
  4. NEURONTIN [Concomitant]
  5. VASOTEC [Concomitant]
  6. DILANTIN [Concomitant]
  7. GLUCOPHAGE [Concomitant]
  8. AVANDIA [Suspect]
     Indication: DIABETES MELLITUS
     Dosage: 4MG PER DAY
     Route: 048
     Dates: start: 20050101

REACTIONS (2)
  - TRANSIENT ISCHAEMIC ATTACK [None]
  - CARDIAC FAILURE CONGESTIVE [None]
